FAERS Safety Report 16362128 (Version 1)
Quarter: 2019Q2

REPORT INFORMATION
  Report Type: Other
  Country: FR (occurrence: FR)
  Receive Date: 20190528
  Receipt Date: 20190528
  Transmission Date: 20190711
  Serious: Yes (Other)
  Sender: FDA-Public Use
  Company Number: FR-IMPAX LABORATORIES, LLC-2019-IPXL-01083

PATIENT

DRUGS (1)
  1. ALBENZA [Suspect]
     Active Substance: ALBENDAZOLE
     Indication: HEPATIC ECHINOCOCCIASIS
     Dosage: 2 DOSAGE FORM, DAILY (400 MG 2 DOSAGE FORM ONCE DAILY)
     Route: 048
     Dates: start: 20190312, end: 20190503

REACTIONS (1)
  - Hepatocellular injury [Not Recovered/Not Resolved]

NARRATIVE: CASE EVENT DATE: 20190409
